FAERS Safety Report 19247893 (Version 1)
Quarter: 2021Q2

REPORT INFORMATION
  Report Type: Spontaneous
  Country: US (occurrence: US)
  Receive Date: 20210512
  Receipt Date: 20210512
  Transmission Date: 20210717
  Serious: No
  Sender: FDA-Public Use
  Company Number: US-PFIZER INC-2021076506

PATIENT
  Age: 72 Year
  Sex: Male

DRUGS (2)
  1. INLYTA [Suspect]
     Active Substance: AXITINIB
     Indication: RADIOTHERAPY
     Dosage: 5 MG
  2. INLYTA [Suspect]
     Active Substance: AXITINIB
     Indication: BONE NEOPLASM
     Dosage: 5 MG, DAILY
     Route: 048

REACTIONS (2)
  - Off label use [Unknown]
  - Dysuria [Unknown]
